FAERS Safety Report 7850727-4 (Version None)
Quarter: 2011Q4

REPORT INFORMATION
  Report Type: 
  Country: None (occurrence: None)
  Receive Date: 20111026
  Receipt Date: 20111019
  Transmission Date: 20120403
  Serious: Yes (Hospitalization)
  Sender: FDA-Public Use
  Company Number: FR-SANOFI-AVENTIS-2011SA068599

PATIENT
  Age: 30 Year
  Sex: Male

DRUGS (6)
  1. FOSFOCINE [Suspect]
     Indication: ANTIBIOTIC THERAPY
     Route: 041
     Dates: start: 20110725, end: 20110802
  2. CLAFORAN [Suspect]
     Indication: ANTIBIOTIC THERAPY
     Route: 042
     Dates: start: 20110725, end: 20110802
  3. ZYPREXA [Suspect]
     Route: 048
     Dates: start: 20110727, end: 20110825
  4. CLAFORAN [Suspect]
     Route: 042
     Dates: start: 20110822, end: 20110825
  5. RIFADIN [Suspect]
     Indication: ANTIBIOTIC THERAPY
     Route: 042
     Dates: start: 20110802, end: 20110822
  6. PIPERACILLIN [Suspect]
     Indication: ANTIBIOTIC THERAPY
     Route: 042
     Dates: start: 20110802, end: 20110822

REACTIONS (5)
  - PYREXIA [None]
  - RASH MACULO-PAPULAR [None]
  - EOSINOPHILIA [None]
  - DRUG RASH WITH EOSINOPHILIA AND SYSTEMIC SYMPTOMS [None]
  - LYMPHADENOPATHY [None]
